FAERS Safety Report 5441647-3 (Version None)
Quarter: 2007Q3

REPORT INFORMATION
  Report Type: 
  Country: None (occurrence: None)
  Receive Date: 20070904
  Receipt Date: 20070827
  Transmission Date: 20080115
  Serious: Yes (Hospitalization, Other)
  Sender: FDA-Public Use
  Company Number: AU-AVENTIS-200715140GDDC

PATIENT
  Age: 74 Year
  Sex: Male

DRUGS (7)
  1. LANTUS [Suspect]
     Dosage: DOSE QUANTITY: 26
     Route: 058
     Dates: start: 20060201
  2. AUTOPEN INSULIN INJECTION PEN [Suspect]
     Route: 058
  3. COVERSYL                           /00790701/ [Concomitant]
  4. LASIX [Concomitant]
  5. PLAVIX [Concomitant]
  6. PRAVACHOL [Concomitant]
  7. ZOLOFT [Concomitant]

REACTIONS (3)
  - CARDIAC DISORDER [None]
  - CONDITION AGGRAVATED [None]
  - CORONARY ARTERY DISEASE [None]
